FAERS Safety Report 14764794 (Version 3)
Quarter: 2018Q2

REPORT INFORMATION
  Report Type: Spontaneous
  Country: US (occurrence: US)
  Receive Date: 20180416
  Receipt Date: 20180530
  Transmission Date: 20180711
  Serious: No
  Sender: FDA-Public Use
  Company Number: US-PFIZER INC-2018153426

PATIENT
  Age: 61 Year
  Sex: Male

DRUGS (1)
  1. METHOTREXATE SODIUM. [Suspect]
     Active Substance: METHOTREXATE SODIUM
     Dosage: UNK
     Dates: end: 2017

REACTIONS (11)
  - Drug ineffective [Unknown]
  - Pruritus [Unknown]
  - Skin fragility [Unknown]
  - Blister [Unknown]
  - Intentional product misuse [Unknown]
  - Rash [Unknown]
  - Musculoskeletal pain [Unknown]
  - Drug hypersensitivity [Unknown]
  - Eczema [Not Recovered/Not Resolved]
  - Condition aggravated [Unknown]
  - Urticaria [Unknown]

NARRATIVE: CASE EVENT DATE: 2017
